FAERS Safety Report 5581642-7 (Version None)
Quarter: 2008Q1

REPORT INFORMATION
  Report Type: 
  Country: None (occurrence: None)
  Receive Date: 20080104
  Receipt Date: 20070718
  Transmission Date: 20080703
  Serious: Yes (Hospitalization, Other)
  Sender: FDA-Public Use
  Company Number: US-ASTRAZENECA-2006UW09856

PATIENT
  Age: 48 Year
  Sex: Female
  Weight: 90 kg

DRUGS (10)
  1. SEROQUEL [Suspect]
     Indication: BIPOLAR I DISORDER
     Route: 048
     Dates: start: 20010101, end: 20040101
  2. SEROQUEL [Suspect]
     Indication: DEPRESSION
     Route: 048
     Dates: start: 20010101, end: 20040101
  3. ABILIFY [Concomitant]
     Route: 048
     Dates: start: 20040101, end: 20050101
  4. GEODON [Concomitant]
     Route: 048
     Dates: start: 20050101, end: 20060101
  5. STELAZINE [Concomitant]
     Dosage: 1 MG - 2 MG
     Route: 048
     Dates: start: 19860101, end: 20010101
  6. OLANZAPINE [Concomitant]
     Route: 048
     Dates: start: 19980101, end: 19980101
  7. CELEXA [Concomitant]
     Route: 048
     Dates: start: 20070101
  8. WELLBUTRIN [Concomitant]
     Route: 048
     Dates: start: 19930101
  9. LITHIUM [Concomitant]
     Route: 048
     Dates: start: 20050501
  10. DEPAKOTE [Concomitant]
     Route: 048
     Dates: start: 19930101

REACTIONS (10)
  - ARTHRITIS [None]
  - BLOOD CHOLESTEROL INCREASED [None]
  - BLOOD TRIGLYCERIDES INCREASED [None]
  - DIABETES MELLITUS [None]
  - DIABETIC KETOACIDOSIS [None]
  - GALLBLADDER DISORDER [None]
  - GASTRIC BYPASS [None]
  - HEPATIC ENZYME INCREASED [None]
  - LIVER DISORDER [None]
  - MENTAL DISORDER [None]
